FAERS Safety Report 8496449-0 (Version None)
Quarter: 2012Q3

REPORT INFORMATION
  Report Type: 
  Country: None (occurrence: None)
  Receive Date: 20120709
  Receipt Date: 20120628
  Transmission Date: 20120928
  Serious: Yes (Other)
  Sender: FDA-Public Use
  Company Number: JP-BRISTOL-MYERS SQUIBB COMPANY-13478268

PATIENT
  Age: 52 Year
  Sex: Male

DRUGS (12)
  1. PROPRANOLOL HYDROCHLORIDE [Concomitant]
     Indication: TREMOR
     Route: 048
     Dates: start: 20040428
  2. TRAZODONE HCL [Concomitant]
     Route: 048
     Dates: start: 20040428
  3. REBAMIPIDE [Concomitant]
     Indication: GASTRITIS
     Route: 048
     Dates: start: 20040428
  4. IMIDAPRIL HCL [Concomitant]
     Indication: HYPERTENSION
     Route: 048
     Dates: start: 20040428
  5. FLUNITRAZEPAM [Concomitant]
     Indication: INSOMNIA
     Route: 048
     Dates: start: 20040428
  6. NIFEDIPINE [Concomitant]
     Indication: HYPERTENSION
     Dates: start: 20040428
  7. RISPERIDONE [Concomitant]
     Indication: SCHIZOPHRENIA, PARANOID TYPE
     Route: 048
     Dates: start: 20050227, end: 20060725
  8. ARIPIPRAZOLE [Suspect]
     Indication: SCHIZOPHRENIA, PARANOID TYPE
     Route: 048
     Dates: start: 20060706, end: 20060803
  9. BROMAZEPAM [Concomitant]
     Indication: ANXIETY
     Route: 048
     Dates: start: 20040428
  10. RISPERIDONE [Concomitant]
     Route: 048
     Dates: start: 20060703, end: 20060710
  11. TAMSULOSIN HCL [Concomitant]
     Indication: DYSURIA
     Route: 048
     Dates: start: 20040428
  12. RISPERIDONE [Concomitant]
     Route: 048
     Dates: start: 20060626, end: 20060702

REACTIONS (1)
  - PSYCHIATRIC SYMPTOM [None]
